FAERS Safety Report 22531141 (Version 5)
Quarter: 2024Q1

REPORT INFORMATION
  Report Type: Report from Study
  Country: US (occurrence: US)
  Receive Date: 20230607
  Receipt Date: 20240117
  Transmission Date: 20240409
  Serious: No
  Sender: FDA-Public Use
  Company Number: US-002147023-NVSC2023US127351

PATIENT
  Age: 59 Year
  Sex: Male

DRUGS (2)
  1. KESIMPTA [Suspect]
     Active Substance: OFATUMUMAB
     Indication: Multiple sclerosis
     Dosage: UNK
     Route: 065
  2. KESIMPTA [Suspect]
     Active Substance: OFATUMUMAB
     Dosage: 20 MG, QMO
     Route: 058
     Dates: start: 20230515

REACTIONS (9)
  - Fatigue [Unknown]
  - Mobility decreased [Recovering/Resolving]
  - Arthralgia [Unknown]
  - COVID-19 [Recovered/Resolved]
  - Joint injury [Unknown]
  - Pyrexia [Unknown]
  - Muscular weakness [Unknown]
  - Upper respiratory tract congestion [Unknown]
  - Illness [Unknown]

NARRATIVE: CASE EVENT DATE: 20230801
